FAERS Safety Report 14210564 (Version 1)
Quarter: 2017Q4

REPORT INFORMATION
  Report Type: Spontaneous
  Country: US (occurrence: US)
  Receive Date: 20171121
  Receipt Date: 20171121
  Transmission Date: 20180321
  Serious: Yes (Hospitalization)
  Sender: FDA-Public Use
  Company Number: US-UNITED THERAPEUTICS-UNT-2017-016203

PATIENT
  Sex: Male

DRUGS (1)
  1. TYVASO [Suspect]
     Active Substance: TREPROSTINIL
     Indication: PULMONARY ARTERIAL HYPERTENSION
     Dosage: 120 ?G, QID
     Dates: start: 20150316

REACTIONS (3)
  - Tachycardia [Unknown]
  - Atrial flutter [Unknown]
  - Off label use [Unknown]

NARRATIVE: CASE EVENT DATE: 20171025
